FAERS Safety Report 23584788 (Version 1)
Quarter: 2024Q1

REPORT INFORMATION
  Report Type: Spontaneous
  Country: GB (occurrence: GB)
  Receive Date: 20240301
  Receipt Date: 20240301
  Transmission Date: 20240409
  Serious: Yes (Other)
  Sender: FDA-Public Use
  Company Number: GB-MHRA-TPP845881C10716199YC1708073767143

PATIENT
  Age: 70 Year
  Sex: Male
  Weight: 75 kg

DRUGS (6)
  1. AMLODIPINE [Suspect]
     Active Substance: AMLODIPINE BESYLATE
     Indication: Ill-defined disorder
     Dosage: UNK
     Route: 048
     Dates: start: 20230815, end: 20240216
  2. AMLODIPINE [Suspect]
     Active Substance: AMLODIPINE BESYLATE
     Dosage: UNK
     Route: 065
     Dates: start: 20240216
  3. AMITRIPTYLINE HYDROCHLORIDE [Concomitant]
     Active Substance: AMITRIPTYLINE HYDROCHLORIDE
     Indication: Ill-defined disorder
     Dosage: UNK, AT BED TIME(1 TO BE TAKEN EACH NIGHT)
     Route: 065
     Dates: start: 20221116
  4. ASPIRIN [Concomitant]
     Active Substance: ASPIRIN
     Indication: Ill-defined disorder
     Dosage: UNK UNK, ONCE A DAY(TAKE ONE DAILY)
     Route: 065
     Dates: start: 20230815
  5. BISOPROLOL [Concomitant]
     Active Substance: BISOPROLOL\BISOPROLOL FUMARATE
     Indication: Ill-defined disorder
     Dosage: UNK UNK, ONCE A DAY(TAKE ONE TABLET DAILY)
     Route: 065
     Dates: start: 20230815
  6. CANDESARTAN [Concomitant]
     Active Substance: CANDESARTAN
     Indication: Ill-defined disorder
     Dosage: UNK UNK, ONCE A DAY(TAKE ONE TABLET DAILY)
     Route: 065
     Dates: start: 20240216

REACTIONS (1)
  - Gingivitis [Recovered/Resolved with Sequelae]

NARRATIVE: CASE EVENT DATE: 20240216
